FAERS Safety Report 11983350 (Version 1)
Quarter: 2016Q1

REPORT INFORMATION
  Report Type: Other
  Country: FR (occurrence: FR)
  Receive Date: 20160201
  Receipt Date: 20160201
  Transmission Date: 20160526
  Serious: Yes (Other)
  Sender: FDA-Public Use
  Company Number: FR-MYLANLABS-2016M1003659

PATIENT

DRUGS (1)
  1. ACETYLCYSTEINE MYLAN [Suspect]
     Active Substance: ACETYLCYSTEINE
     Indication: EAR INFECTION
     Dosage: 1 DF, BID
     Route: 048
     Dates: start: 20151223, end: 20151224

REACTIONS (2)
  - Rash erythematous [Recovered/Resolved]
  - Product substitution issue [Unknown]

NARRATIVE: CASE EVENT DATE: 20151223
